FAERS Safety Report 8838596 (Version 5)
Quarter: 2013Q2

REPORT INFORMATION
  Report Type: Spontaneous
  Country: US (occurrence: US)
  Receive Date: 20121012
  Receipt Date: 20130402
  Transmission Date: 20140414
  Serious: No
  Sender: FDA-Public Use
  Company Number: US-ASTRAZENECA-2012SE76890

PATIENT
  Age: 42 Year
  Sex: Male
  Weight: 95.3 kg

DRUGS (10)
  1. SEROQUEL [Suspect]
     Indication: BIPOLAR I DISORDER
     Route: 048
     Dates: start: 2010, end: 20121001
  2. SEROQUEL [Suspect]
     Indication: BIPOLAR DISORDER
     Route: 048
     Dates: start: 2010, end: 20121001
  3. SEROQUEL [Suspect]
     Indication: BIPOLAR I DISORDER
     Route: 048
  4. SEROQUEL [Suspect]
     Indication: BIPOLAR DISORDER
     Route: 048
  5. SEROQUEL [Suspect]
     Indication: BIPOLAR I DISORDER
     Dosage: CUT IN HALF TO 100 MG
     Route: 048
  6. SEROQUEL [Suspect]
     Indication: BIPOLAR DISORDER
     Dosage: CUT IN HALF TO 100 MG
     Route: 048
  7. SEROQUEL [Suspect]
     Indication: BIPOLAR I DISORDER
     Dosage: TAKING 1 TABLET AT A TIME
     Route: 048
  8. SEROQUEL [Suspect]
     Indication: BIPOLAR DISORDER
     Dosage: TAKING 1 TABLET AT A TIME
     Route: 048
  9. LITHIUM [Concomitant]
     Indication: BIPOLAR I DISORDER
     Route: 048
     Dates: start: 2010
  10. EFFEXOR [Concomitant]
     Indication: TREMOR
     Route: 048
     Dates: start: 2010

REACTIONS (11)
  - Affective disorder [Unknown]
  - Headache [Unknown]
  - Insomnia [Unknown]
  - Middle insomnia [Unknown]
  - Eructation [Unknown]
  - Feeling abnormal [Unknown]
  - Adverse event [Unknown]
  - Mental retardation [Unknown]
  - Drug withdrawal syndrome [Unknown]
  - Intentional drug misuse [Unknown]
  - Drug dose omission [Unknown]
